FAERS Safety Report 8965893 (Version 1)
Quarter: 2012Q4

REPORT INFORMATION
  Report Type: 
  Country: US (occurrence: US)
  Receive Date: 20121214
  Receipt Date: 20121214
  Transmission Date: 20130627
  Serious: No
  Sender: FDA-Public Use
  Company Number: US-ASTRAZENECA-2012SE83027

PATIENT
  Age: 42 Year
  Sex: Female

DRUGS (14)
  1. CAPRELSA [Suspect]
     Route: 048
     Dates: start: 20121022
  2. ALBUTEROL [Concomitant]
  3. CALCITRIOL [Concomitant]
  4. COMPAZINE [Concomitant]
  5. KLOR-CON [Concomitant]
  6. MAXZIDE [Concomitant]
  7. NORCO [Concomitant]
  8. OXYCODONE [Concomitant]
  9. OXYCONTIN [Concomitant]
  10. SYNTHROID [Concomitant]
  11. VENTOLIN [Concomitant]
  12. ZOLPIDEM [Concomitant]
  13. BUPROPION HCL [Concomitant]
  14. PERIDENT 5000 PLUS [Concomitant]

REACTIONS (3)
  - Excoriation [Unknown]
  - Stomatitis [Unknown]
  - Nausea [Unknown]
